FAERS Safety Report 10128713 (Version 1)
Quarter: 2014Q2

REPORT INFORMATION
  Report Type: Spontaneous
  Country: FR (occurrence: FR)
  Receive Date: 20140428
  Receipt Date: 20140428
  Transmission Date: 20141212
  Serious: Yes (Hospitalization)
  Sender: FDA-Public Use
  Company Number: FR-009507513-1404FRA011729

PATIENT
  Age: 84 Year
  Sex: Female

DRUGS (8)
  1. COZAAR 50 MG, COMPRIM? PELLICUL? [Suspect]
     Dosage: 25 MG, QD
     Route: 048
     Dates: start: 20121101, end: 20131124
  2. MORPHINE RENAUDIN (MORPHINE SULFATE) [Suspect]
     Dosage: (1 MG/10 KG)  5 MG, ONCE
     Route: 058
     Dates: start: 20131124, end: 20131124
  3. CARDENSIEL [Concomitant]
     Route: 048
  4. FUROSEMIDE [Concomitant]
     Route: 048
  5. MIANSERIN HYDROCHLORIDE [Concomitant]
     Route: 048
  6. PREVISCAN [Concomitant]
     Route: 048
  7. SERESTA [Concomitant]
     Route: 048
  8. GELUPRANE [Concomitant]
     Route: 048

REACTIONS (1)
  - Pancreatitis acute [Recovered/Resolved]
